FAERS Safety Report 9404359 (Version 1)
Quarter: 2013Q3

REPORT INFORMATION
  Report Type: Spontaneous
  Country: US (occurrence: None)
  Receive Date: 20130715
  Receipt Date: 20130715
  Transmission Date: 20140515
  Serious: Yes (Hospitalization)
  Sender: FDA-Public Use
  Company Number: AMAG201300108

PATIENT
  Sex: Male

DRUGS (1)
  1. FERAHEME [Suspect]
     Indication: IRON DEFICIENCY ANAEMIA
     Dosage: 3 ML, SINGLE, INTRAVENOUS
     Route: 042
     Dates: start: 201306, end: 201306

REACTIONS (5)
  - Hypersensitivity [None]
  - Unresponsive to stimuli [None]
  - Convulsion [None]
  - Dyspnoea [None]
  - Urinary tract infection [None]
